FAERS Safety Report 23990499 (Version 1)
Quarter: 2024Q2

REPORT INFORMATION
  Report Type: Spontaneous
  Country: US (occurrence: US)
  Receive Date: 20240619
  Receipt Date: 20240619
  Transmission Date: 20240716
  Serious: Yes (Hospitalization)
  Sender: FDA-Public Use
  Company Number: US-BRISTOL-MYERS SQUIBB COMPANY-2024-093180

PATIENT
  Age: 72 Year
  Sex: Male

DRUGS (48)
  1. REVLIMID [Suspect]
     Active Substance: LENALIDOMIDE
     Indication: Plasma cell myeloma
     Route: 048
     Dates: start: 20240513
  2. REVLIMID [Suspect]
     Active Substance: LENALIDOMIDE
     Dosage: EVERY OTHER DAY FOR 21 DAYS FOLLOWED BY 7 DAYS OFF
     Route: 048
  3. ACYCLOVIR [Concomitant]
     Active Substance: ACYCLOVIR
     Indication: Infection
     Dosage: 1 TABLET BY MOUTH TWICE DAILY FOR INFECTION OR PROPHYLAXIS
     Route: 048
  4. ACYCLOVIR [Concomitant]
     Active Substance: ACYCLOVIR
     Indication: Prophylaxis
  5. AMOXICILLIN\CLAVULANIC ACID [Concomitant]
     Active Substance: AMOXICILLIN\CLAVULANIC ACID
     Indication: Product used for unknown indication
     Dosage: 1 TABLET BY MOUTH EVERY 12 HOURS FOR 10 DAYS?875-125MG
     Route: 048
  6. AMOXICILLIN\CLAVULANIC ACID [Concomitant]
     Active Substance: AMOXICILLIN\CLAVULANIC ACID
     Dosage: 1 TABLET BY MOUTH EVERY 12 HOURS WITH FOOD OR MILK FOR 4 DAYS?875-125MG
     Route: 048
  7. ASPIRIN [Concomitant]
     Active Substance: ASPIRIN
     Indication: Product used for unknown indication
     Dosage: 1 TABLET BY MOUTH EVERY EVERY DAY?EC LOW DOSE TABLET
     Route: 048
  8. AZITHROMYCIN [Concomitant]
     Active Substance: AZITHROMYCIN
     Indication: Product used for unknown indication
     Dosage: 1 TABLET BY MOUTH EVERY EVERY DAY FOR 3 DAYS
     Route: 048
  9. BROMFENAC [Concomitant]
     Active Substance: BROMFENAC SODIUM
     Indication: Product used for unknown indication
     Dosage: INSTILL 1 DROP IN LEFT EYE TWICE DAILY
     Route: 047
  10. CIPROFLOXACIN [Concomitant]
     Active Substance: CIPROFLOXACIN
     Indication: Product used for unknown indication
     Dosage: 1 TABLET BY MOUTH EVERY 12 HOURS FOR 7 DAYS
     Route: 048
  11. CLOPIDOGREL [Concomitant]
     Active Substance: CLOPIDOGREL BISULFATE
     Indication: Product used for unknown indication
     Dosage: 1 TABLET BY MOUTH EVERY DAY
     Route: 048
  12. DEXAMETHASONE [Concomitant]
     Active Substance: DEXAMETHASONE
     Indication: Product used for unknown indication
     Dosage: 10 TABLETS BY MOUTH 1 O 3 HOURS BEFORE DARATUMUMAB WITH FOOD
     Route: 048
  13. DIFLUPREDNATE [Concomitant]
     Active Substance: DIFLUPREDNATE
     Indication: Product used for unknown indication
     Dosage: OPH EMULSION?INSTILL 1 DROP IN LEFT EYE TWICE DAILY
     Route: 047
  14. DIFLUPREDNATE [Concomitant]
     Active Substance: DIFLUPREDNATE
     Dosage: OPH EMULSION?INSTILL 1 DROP IN LEFT EYE 3 TIMES DAILY, START 4 TIMES DAILY IN RIGHT EYE DAY OF SURGE
     Route: 047
  15. DIFLUPREDNATE [Concomitant]
     Active Substance: DIFLUPREDNATE
     Dosage: OPH EMULSION?INSTILL 1 DROP IN LEFT EYE 3 TIMES DAILY
     Route: 047
  16. DIFLUPREDNATE [Concomitant]
     Active Substance: DIFLUPREDNATE
     Dosage: OPH EMULSION?INSTILL 1 DROP IN LEFT EYE 3 TIMES DAILY, START 4 TIMES DAILY IN RIGHT EYE DAY OF SURGE
     Route: 047
  17. FERROUS SULFATE [Concomitant]
     Active Substance: FERROUS SULFATE
     Indication: Product used for unknown indication
     Dosage: 1 TABLET BY MOUTH EVERY DAY
     Route: 048
  18. FLUCONAZOLE [Concomitant]
     Active Substance: FLUCONAZOLE
     Indication: Product used for unknown indication
     Dosage: 1 TABLET BY MOUTH EVERY DAY FOR 10 DAYS
     Route: 048
  19. HALOBETASOL [Concomitant]
     Active Substance: HALOBETASOL
     Indication: Product used for unknown indication
     Dosage: APPLY TOPICALLY TO AFFECTED AREA 1 TO 2 TIMES PER DAY
     Route: 061
  20. HYDROXYZINE HYDROCHLORIDE [Concomitant]
     Active Substance: HYDROXYZINE HYDROCHLORIDE
     Indication: Pruritus
     Dosage: 2 TABLETS BY MOUTH EVERY DAY AT BED TIME
     Route: 048
  21. HYDROXYZINE HYDROCHLORIDE [Concomitant]
     Active Substance: HYDROXYZINE HYDROCHLORIDE
     Dosage: 1-2 TABLETS BY MOUTH EVERY EVENING FOR ITCH AND REST
     Route: 048
  22. KETOCONAZOLE [Concomitant]
     Active Substance: KETOCONAZOLE
     Indication: Product used for unknown indication
     Dosage: TOPICALLY TO SCALP 2 TO 3 TIMES WEEKLY, LATHER LET SIT FOR 3 TO 5 MINUTES
     Route: 061
  23. KETOCONAZOLE [Concomitant]
     Active Substance: KETOCONAZOLE
     Dosage: TOPICALLY TO FEET TWICE DAILY
     Route: 061
  24. KETOCONAZOLE [Concomitant]
     Active Substance: KETOCONAZOLE
     Dosage: TOPICALLY TO SCALP 2 TO 3 TIMES WEEKLY
     Route: 061
  25. KETOROLAC [Concomitant]
     Active Substance: KETOROLAC TROMETHAMINE
     Indication: Product used for unknown indication
     Dosage: 1 DROP IN OPERATIVE EYE 4 TIMES DAILY STARTING 1 DAY BEFORE SURGERY AND FOR 5 WEEKS AFTER SURGERY
     Route: 047
  26. METOPROLOL TARTRATE [Concomitant]
     Active Substance: METOPROLOL TARTRATE
     Indication: Product used for unknown indication
     Dosage: 1 TABLET BY MOUTH TWICE DAILY WITH FOOD
     Route: 048
  27. NITROGLYCERIN [Concomitant]
     Active Substance: NITROGLYCERIN
     Indication: Chest pain
     Dosage: DISSOLVE 1 TABLET UNDER TONGUE
     Route: 060
  28. PAXLOVID [Concomitant]
     Active Substance: NIRMATRELVIR\RITONAVIR
     Indication: Product used for unknown indication
     Route: 048
  29. PREDNISOLONE [Concomitant]
     Active Substance: PREDNISOLONE
     Indication: Product used for unknown indication
     Dosage: 15MG/5ML DAILY WITH FOOD
     Route: 048
  30. PROLENSA [Concomitant]
     Active Substance: BROMFENAC SODIUM
     Indication: Product used for unknown indication
     Dosage: 1 DROP IN LEFT EYE TWICE DAILY
     Route: 047
  31. RANOLAZINE [Concomitant]
     Active Substance: RANOLAZINE
     Indication: Product used for unknown indication
     Dosage: 1 TABLET BY MOUTH TWICE DAILY
     Route: 048
  32. SILVER SULFADIAZINE [Concomitant]
     Active Substance: SILVER SULFADIAZINE
     Indication: Product used for unknown indication
     Dosage: APPLY TO BUTTOCK EVERY EVENING
     Route: 061
  33. TOBRAMYCIN [Concomitant]
     Active Substance: TOBRAMYCIN\TOBRAMYCIN SULFATE
     Indication: Product used for unknown indication
     Dosage: 1 DROP IN INTRAOPERATIVE EYE 4 TIMES DAILY STARTING THE DAY BEFORE SURGERY AND 1 WEEK AFTER SURGERY
     Route: 047
  34. TRAMADOL [Concomitant]
     Active Substance: TRAMADOL\TRAMADOL HYDROCHLORIDE
     Indication: Pain
     Dosage: 1 DROP IN INTRAOPERATIVE EYE 4 TIMES DAILY STARTING THE DAY BEFORE SURGERY AND 1 WEEK AFTER SURGERY
     Route: 048
  35. TRIAMCINOLONE [Concomitant]
     Active Substance: TRIAMCINOLONE
     Indication: Pruritus
     Dosage: APPLY 1-2 TIMES EVERY DAY TO AFFECTED AREA
     Route: 061
  36. TRIAMCINOLONE [Concomitant]
     Active Substance: TRIAMCINOLONE
     Dosage: APPLY TO LEG TWICE DAILY
     Route: 061
  37. TROPICAMIDE [Concomitant]
     Active Substance: TROPICAMIDE
     Indication: Product used for unknown indication
     Dosage: 1 DROP IN INTRAOPERATIVE EYE EVERY 20 MINUTES STARTING 1 HOUR PRIOR TO SURGERY
     Route: 047
  38. ZOLPIDEM [Concomitant]
     Active Substance: ZOLPIDEM TARTRATE
     Indication: Insomnia
     Dosage: AS NEEDED IMMEDIATELY BEFORE BEDTIME
     Route: 048
  39. BUMEX [Concomitant]
     Active Substance: BUMETANIDE
     Indication: Product used for unknown indication
  40. DARZALEX [Concomitant]
     Active Substance: DARATUMUMAB
     Indication: Product used for unknown indication
     Dosage: 100MG/5ML
  41. HUMALOG [Concomitant]
     Active Substance: INSULIN LISPRO
     Indication: Product used for unknown indication
     Dosage: 100U/ML KWIK PEN
  42. JARDIANCE [Concomitant]
     Active Substance: EMPAGLIFLOZIN
     Indication: Product used for unknown indication
  43. LANTUS SOLOSTAR [Concomitant]
     Active Substance: INSULIN GLARGINE
     Indication: Product used for unknown indication
     Dosage: PEN
  44. LIPITOR [Concomitant]
     Active Substance: ATORVASTATIN CALCIUM
     Indication: Product used for unknown indication
  45. VITAMINS NOS [Concomitant]
     Active Substance: VITAMINS
     Indication: Product used for unknown indication
     Dosage: ADULTS 50+
  46. SINGULAIR [Concomitant]
     Active Substance: MONTELUKAST SODIUM
     Indication: Product used for unknown indication
  47. TRINTELLIX [Concomitant]
     Active Substance: VORTIOXETINE HYDROBROMIDE
     Indication: Product used for unknown indication
  48. ZETIA [Concomitant]
     Active Substance: EZETIMIBE
     Indication: Product used for unknown indication

REACTIONS (5)
  - Infection [Unknown]
  - Platelet count decreased [Unknown]
  - White blood cell count decreased [Unknown]
  - Red blood cell count decreased [Unknown]
  - Fatigue [Unknown]

NARRATIVE: CASE EVENT DATE: 20240602
